FAERS Safety Report 9859780 (Version 4)
Quarter: 2014Q1

REPORT INFORMATION
  Report Type: Report from Study
  Country: US (occurrence: US)
  Receive Date: 20140131
  Receipt Date: 20140311
  Transmission Date: 20141002
  Serious: Yes (Hospitalization, Other)
  Sender: FDA-Public Use
  Company Number: US-ACTELION-A-US2013-93168

PATIENT
  Age: 48 Year
  Sex: Male

DRUGS (6)
  1. TRACLEER [Suspect]
     Indication: PULMONARY HYPERTENSION
     Dosage: UNK
     Route: 048
  2. TADALAFIL [Concomitant]
  3. COUMADIN [Concomitant]
  4. TYVASO [Concomitant]
  5. ADCIRCA [Concomitant]
  6. SPIRONOLACTONE [Concomitant]
     Dosage: 50 MG, UNK

REACTIONS (5)
  - Atrial fibrillation [Recovered/Resolved]
  - Cardiac pacemaker insertion [Recovered/Resolved]
  - Cough [Unknown]
  - Nasopharyngitis [Unknown]
  - International normalised ratio decreased [Unknown]
